FAERS Safety Report 18497671 (Version 2)
Quarter: 2022Q3

REPORT INFORMATION
  Report Type: Report from Study
  Country: CA (occurrence: CA)
  Receive Date: 20201112
  Receipt Date: 20220913
  Transmission Date: 20221026
  Serious: Yes (Other)
  Sender: FDA-Public Use
  Company Number: CA-JNJFOC-20200947328

PATIENT
  Age: 43 Year
  Sex: Female

DRUGS (2)
  1. STELARA [Suspect]
     Active Substance: USTEKINUMAB
     Indication: Crohn^s disease
     Route: 058
     Dates: start: 20191121
  2. STELARA [Suspect]
     Active Substance: USTEKINUMAB
     Route: 058
     Dates: start: 20200924

REACTIONS (9)
  - Crohn^s disease [Unknown]
  - Blood magnesium decreased [Unknown]
  - Blood iron decreased [Unknown]
  - Blood zinc decreased [Unknown]
  - Blood potassium decreased [Unknown]
  - Hypoaesthesia [Unknown]
  - Therapeutic product effect decreased [Unknown]
  - Injection site reaction [Recovered/Resolved]
  - Off label use [Unknown]

NARRATIVE: CASE EVENT DATE: 20200924
